FAERS Safety Report 9419725 (Version 1)
Quarter: 2013Q3

REPORT INFORMATION
  Report Type: Spontaneous
  Country: US (occurrence: US)
  Receive Date: 20130725
  Receipt Date: 20130725
  Transmission Date: 20140515
  Serious: Yes (Hospitalization, Other)
  Sender: FDA-Public Use
  Company Number: US-ASTRAZENECA-2013SE54328

PATIENT
  Age: 82 Year
  Sex: Male

DRUGS (9)
  1. NEXIUM [Suspect]
     Dosage: GENERIC
     Route: 065
  2. LISINOPRIL [Suspect]
     Indication: HYPERTENSION
     Route: 048
     Dates: start: 2012
  3. OMEPRAZOLE [Suspect]
     Indication: GASTROOESOPHAGEAL REFLUX DISEASE
     Dosage: GENERIC, 40 MG, DAILY
     Route: 048
  4. BLOOD PRESSURE MEDICATION [Concomitant]
  5. RENAVIT RX [Concomitant]
     Indication: RENAL DISORDER
  6. SIMVASTIN [Concomitant]
     Indication: BLOOD CHOLESTEROL ABNORMAL
     Route: 048
  7. BUPROPION [Concomitant]
     Indication: AFFECTIVE DISORDER
     Route: 048
  8. OXYBUTYNIN [Concomitant]
     Indication: BLADDER DISORDER
     Route: 048
  9. OXYCODONE [Concomitant]
     Dosage: AS NEEDED

REACTIONS (6)
  - Throat tightness [Recovered/Resolved]
  - Sciatica [Recovering/Resolving]
  - Dysphagia [Recovered/Resolved]
  - Back pain [Not Recovered/Not Resolved]
  - Dehydration [Recovered/Resolved]
  - Blood pressure abnormal [Unknown]
